FAERS Safety Report 6983586-2 (Version None)
Quarter: 2010Q3

REPORT INFORMATION
  Report Type: 
  Country: None (occurrence: None)
  Receive Date: 20100914
  Receipt Date: 20080822
  Transmission Date: 20110219
  Serious: No
  Sender: FDA-Public Use
  Company Number: US-WYE-H05699008

PATIENT
  Age: 78 Year
  Sex: Female
  Weight: 56.75 kg

DRUGS (2)
  1. ADVIL LIQUI-GELS [Suspect]
     Indication: PAIN IN EXTREMITY
     Dosage: 1 TABLET EVERY 6 HOURS
     Route: 048
     Dates: start: 20080801, end: 20080801
  2. ADVIL LIQUI-GELS [Suspect]
     Indication: ARTHRITIS

REACTIONS (3)
  - CONDITION AGGRAVATED [None]
  - DRUG INEFFECTIVE [None]
  - PAIN IN EXTREMITY [None]
